FAERS Safety Report 5575246-X (Version None)
Quarter: 2007Q4

REPORT INFORMATION
  Report Type: 
  Country: None (occurrence: None)
  Receive Date: 20071221
  Receipt Date: 20071008
  Transmission Date: 20080405
  Serious: Yes (Hospitalization)
  Sender: FDA-Public Use
  Company Number: TROSS10082007

PATIENT
  Sex: Female

DRUGS (1)
  1. COOL CONFIDENCE BABY POWDER ROLL-ON 50ML [Suspect]

REACTIONS (1)
  - AXILLARY MASS [None]
